FAERS Safety Report 7296056-1 (Version None)
Quarter: 2011Q1

REPORT INFORMATION
  Report Type: 
  Country: None (occurrence: None)
  Receive Date: 20110216
  Receipt Date: 20101118
  Transmission Date: 20110831
  Serious: No
  Sender: FDA-Public Use
  Company Number: US-ABBOTT-10P-163-0686917-00

PATIENT
  Sex: Male
  Weight: 104.42 kg

DRUGS (4)
  1. VITAMIN D [Concomitant]
     Indication: VITAMIN D DEFICIENCY
  2. CYMBALTA [Concomitant]
     Indication: ANXIETY
  3. ASPIRIN [Concomitant]
     Indication: PRODUCT USED FOR UNKNOWN INDICATION
  4. SIMCOR [Suspect]
     Indication: HIGH DENSITY LIPOPROTEIN DECREASED
     Dates: start: 20091101

REACTIONS (4)
  - FLUSHING [None]
  - BURNING SENSATION [None]
  - GENERALISED ERYTHEMA [None]
  - PAIN OF SKIN [None]
